FAERS Safety Report 11680424 (Version 3)
Quarter: 2015Q4

REPORT INFORMATION
  Report Type: Spontaneous
  Country: US (occurrence: US)
  Receive Date: 20151027
  Receipt Date: 20151110
  Transmission Date: 20160304
  Serious: No
  Sender: FDA-Public Use
  Company Number: US-ELI_LILLY_AND_COMPANY-US201009002048

PATIENT
  Age: 75 Year
  Sex: Female

DRUGS (2)
  1. FORTEO [Suspect]
     Active Substance: TERIPARATIDE
     Indication: OSTEOPOROSIS
     Dosage: 20 UG, DAILY (1/D)
     Dates: start: 2009
  2. FORTEO [Suspect]
     Active Substance: TERIPARATIDE
     Dosage: 20 UG, QD

REACTIONS (19)
  - Fibromyalgia [Unknown]
  - Herpes zoster [Unknown]
  - Malaise [Unknown]
  - Musculoskeletal discomfort [Unknown]
  - Systemic lupus erythematosus [Unknown]
  - Asthenia [Unknown]
  - Rash [Recovered/Resolved]
  - Headache [Unknown]
  - Limb discomfort [Unknown]
  - Myalgia [Unknown]
  - Feeling abnormal [Unknown]
  - Fall [Unknown]
  - Hypothyroidism [Unknown]
  - Fall [Recovered/Resolved]
  - Anaemia [Unknown]
  - Viral infection [Unknown]
  - Pain in jaw [Unknown]
  - Ear pain [Unknown]
  - Pain [Unknown]

NARRATIVE: CASE EVENT DATE: 201010
